FAERS Safety Report 14273923 (Version 1)
Quarter: 2017Q4

REPORT INFORMATION
  Report Type: Spontaneous
  Country: MX (occurrence: MX)
  Receive Date: 20171211
  Receipt Date: 20171211
  Transmission Date: 20180321
  Serious: Yes (Other)
  Sender: FDA-Public Use
  Company Number: MX-OTSUKA-DJ20071559

PATIENT
  Age: 28 Year
  Sex: Female

DRUGS (1)
  1. ABILIFY [Suspect]
     Active Substance: ARIPIPRAZOLE
     Indication: PRODUCT USED FOR UNKNOWN INDICATION
     Dosage: 15 MG, UNK
     Route: 048
     Dates: start: 2006, end: 2007

REACTIONS (4)
  - Vulvovaginal swelling [Unknown]
  - Palatal oedema [Unknown]
  - Weight increased [Unknown]
  - Vulval disorder [Unknown]

NARRATIVE: CASE EVENT DATE: 2007
